FAERS Safety Report 17617840 (Version 5)
Quarter: 2021Q3

REPORT INFORMATION
  Report Type: Report from Study
  Country: US (occurrence: US)
  Receive Date: 20200402
  Receipt Date: 20210810
  Transmission Date: 20211014
  Serious: Yes (Hospitalization, Other)
  Sender: FDA-Public Use
  Company Number: US-SHIRE-US202012034

PATIENT
  Age: 58 Year
  Sex: Female
  Weight: 74.83 kg

DRUGS (30)
  1. LIORESAL [Concomitant]
     Active Substance: BACLOFEN
     Dosage: 1 DOSAGE FORM, BID
     Route: 048
     Dates: start: 20210702
  2. MYCOSTATIN [Concomitant]
     Active Substance: NYSTATIN
     Dosage: 5 MILLILITER, QID
     Route: 048
     Dates: start: 20201014
  3. PHENERGAN [Concomitant]
     Active Substance: PROMETHAZINE HYDROCHLORIDE
     Indication: NAUSEA
     Dosage: 1 DOSAGE FORM, Q4HR
     Route: 048
     Dates: start: 20190701
  4. TEDUGLUTIDE [Suspect]
     Active Substance: TEDUGLUTIDE
     Dosage: 5 MILLIGRAM
     Route: 042
     Dates: start: 20170626
  5. TEDUGLUTIDE [Suspect]
     Active Substance: TEDUGLUTIDE
     Dosage: 5 MILLIGRAM
     Route: 042
     Dates: start: 20170626
  6. LEXAPRO [Concomitant]
     Active Substance: ESCITALOPRAM OXALATE
     Dosage: 1 DOSAGE FORM, QD
     Route: 048
     Dates: start: 20210702
  7. IRON [Concomitant]
     Active Substance: IRON
     Dosage: UNK UNK, QD
     Route: 048
  8. TEDUGLUTIDE [Suspect]
     Active Substance: TEDUGLUTIDE
     Indication: SHORT-BOWEL SYNDROME
     Dosage: 0.384 UNK, QD
     Route: 058
  9. PROVENTIL [Concomitant]
     Active Substance: ALBUTEROL
     Indication: COUGH
     Dosage: 1.5 MILLILITER, Q4HR
     Dates: start: 20190701
  10. TEDUGLUTIDE [Suspect]
     Active Substance: TEDUGLUTIDE
     Dosage: 0.39 MILLILITER
     Route: 058
  11. TEDUGLUTIDE [Suspect]
     Active Substance: TEDUGLUTIDE
     Dosage: 5 MILLIGRAM
     Route: 042
     Dates: start: 20170626
  12. PEPCID [Concomitant]
     Active Substance: FAMOTIDINE
     Dosage: 2 DOSAGE FORM, QD
     Route: 048
     Dates: start: 20200609, end: 20210702
  13. PEPCID [Concomitant]
     Active Substance: FAMOTIDINE
     Dosage: 2 DOSAGE FORM, QD
     Route: 048
     Dates: start: 20210702
  14. ATARAX [Concomitant]
     Active Substance: HYDROXYZINE HYDROCHLORIDE
     Indication: ANXIETY
     Dosage: 1 DOSAGE FORM, TID
     Route: 048
     Dates: start: 20210226
  15. TEDUGLUTIDE [Suspect]
     Active Substance: TEDUGLUTIDE
     Indication: SHORT-BOWEL SYNDROME
     Dosage: 0.384 UNK, QD
     Route: 058
  16. TEDUGLUTIDE [Suspect]
     Active Substance: TEDUGLUTIDE
     Indication: SHORT-BOWEL SYNDROME
     Dosage: 0.384 UNK, QD
     Route: 058
  17. PROTONIX [Concomitant]
     Active Substance: PANTOPRAZOLE SODIUM
     Dosage: 1 DOSAGE FORM, QD
     Route: 048
     Dates: start: 20210702
  18. MELATONIN [Concomitant]
     Active Substance: MELATONIN
     Dosage: 1 DOSAGE FORM
     Route: 048
  19. TEDUGLUTIDE [Suspect]
     Active Substance: TEDUGLUTIDE
     Dosage: 0.39 MILLILITER
     Route: 058
  20. TEDUGLUTIDE [Suspect]
     Active Substance: TEDUGLUTIDE
     Dosage: 0.39 MILLILITER
     Route: 058
  21. NEURONTIN [Concomitant]
     Active Substance: GABAPENTIN
     Dosage: 1 DOSAGE FORM, TID
     Route: 048
     Dates: start: 20210226
  22. MIRAPEX [Concomitant]
     Active Substance: PRAMIPEXOLE DIHYDROCHLORIDE
     Dosage: 1 DOSAGE FORM, QD
     Route: 048
     Dates: start: 20200909
  23. BENADRYL [Concomitant]
     Active Substance: DIPHENHYDRAMINE HYDROCHLORIDE
     Dosage: 1 DOSAGE FORM, Q6HR
     Route: 048
  24. TEDUGLUTIDE [Suspect]
     Active Substance: TEDUGLUTIDE
     Indication: SHORT-BOWEL SYNDROME
     Dosage: 0.384 UNK, QD
     Route: 058
  25. TEDUGLUTIDE [Suspect]
     Active Substance: TEDUGLUTIDE
     Dosage: 5 MILLIGRAM
     Route: 042
     Dates: start: 20170626
  26. CYMBALTA [Concomitant]
     Active Substance: DULOXETINE HYDROCHLORIDE
     Dosage: 2 DOSAGE FORM, QD
     Route: 048
     Dates: start: 20210226
  27. SYNTHROID [Concomitant]
     Active Substance: LEVOTHYROXINE SODIUM
     Dosage: 1 DOSAGE FORM, QD
     Route: 048
     Dates: start: 20200904
  28. TEDUGLUTIDE [Suspect]
     Active Substance: TEDUGLUTIDE
     Dosage: 0.39 MILLILITER
     Route: 058
  29. PROAIR HFA [Concomitant]
     Active Substance: ALBUTEROL SULFATE
     Indication: WHEEZING
     Dosage: UNK UNK, Q4HR
     Route: 055
     Dates: start: 20210702
  30. PROAIR HFA [Concomitant]
     Active Substance: ALBUTEROL SULFATE
     Indication: DYSPNOEA

REACTIONS (3)
  - Acute kidney injury [Unknown]
  - Cystitis [Recovered/Resolved]
  - Nephrolithiasis [Unknown]

NARRATIVE: CASE EVENT DATE: 20200330
